FAERS Safety Report 21444851 (Version 3)
Quarter: 2022Q4

REPORT INFORMATION
  Report Type: Spontaneous
  Country: US (occurrence: US)
  Receive Date: 20221012
  Receipt Date: 20221018
  Transmission Date: 20230112
  Serious: Yes (Other)
  Sender: FDA-Public Use
  Company Number: US-SANOFI-01312637

PATIENT
  Sex: Male

DRUGS (1)
  1. ALLEGRA D-12 HOUR [Suspect]
     Active Substance: FEXOFENADINE HYDROCHLORIDE\PSEUDOEPHEDRINE HYDROCHLORIDE
     Indication: Sinus disorder
     Dosage: 2 DF, QD
     Route: 065

REACTIONS (9)
  - Blindness unilateral [Not Recovered/Not Resolved]
  - Vision blurred [Not Recovered/Not Resolved]
  - Eye swelling [Unknown]
  - Balance disorder [Unknown]
  - Swelling [Unknown]
  - Loss of personal independence in daily activities [Unknown]
  - Migraine [Unknown]
  - Dizziness [Unknown]
  - Headache [Unknown]
